FAERS Safety Report 25470342 (Version 2)
Quarter: 2025Q3

REPORT INFORMATION
  Report Type: Report from Study
  Country: US (occurrence: US)
  Receive Date: 20250623
  Receipt Date: 20250714
  Transmission Date: 20251021
  Serious: Yes (Other)
  Sender: ABBVIE
  Company Number: US-ABBVIE-6334113

PATIENT
  Sex: Female
  Weight: 68.038 kg

DRUGS (2)
  1. HUMIRA [Suspect]
     Active Substance: ADALIMUMAB
     Indication: Psoriatic arthropathy
     Dosage: CITRATE FREE ??FORM STRENGTH:  40 MILLIGRAM
     Route: 058
     Dates: start: 20230108, end: 202505
  2. METHOTREXATE [Concomitant]
     Active Substance: METHOTREXATE
     Indication: Psoriatic arthropathy

REACTIONS (1)
  - Follicular lymphoma stage II [Not Recovered/Not Resolved]

NARRATIVE: CASE EVENT DATE: 20250601
